FAERS Safety Report 25205524 (Version 2)
Quarter: 2025Q2

REPORT INFORMATION
  Report Type: Spontaneous
  Country: IL (occurrence: IL)
  Receive Date: 20250417
  Receipt Date: 20250423
  Transmission Date: 20250716
  Serious: Yes (Hospitalization, Other)
  Sender: SANDOZ
  Company Number: IL-SANDOZ-SDZ2025IL023261

PATIENT
  Age: 38 Year
  Sex: Male

DRUGS (1)
  1. METHOTREXATE [Suspect]
     Active Substance: METHOTREXATE
     Indication: Uveitis
     Dosage: 10 MG, QW
     Route: 065

REACTIONS (3)
  - Portal vein thrombosis [Recovered/Resolved]
  - Cytomegalovirus mononucleosis [Recovered/Resolved]
  - Product use in unapproved indication [Unknown]
